FAERS Safety Report 4455621-7 (Version None)
Quarter: 2004Q3

REPORT INFORMATION
  Report Type: 
  Country: None (occurrence: None)
  Receive Date: 20040920
  Receipt Date: 20040920
  Transmission Date: 20050211
  Serious: Yes (Other)
  Sender: FDA-Public Use
  Company Number: None

PATIENT
  Age: 25 Year
  Sex: Male
  Weight: 144.2439 kg

DRUGS (3)
  1. ALPRAZOLAM [Suspect]
     Indication: ANXIETY
     Dosage: 2-3 PILLS DAILY 25 MG
     Dates: start: 20040801
  2. ATENOLOL [Suspect]
     Indication: ANXIETY
     Dosage: 1 PILL DAILY 50MG
     Dates: start: 20040901
  3. ATENOLOL [Suspect]
     Indication: BLOOD PRESSURE
     Dosage: 1 PILL DAILY 50MG
     Dates: start: 20040901

REACTIONS (3)
  - ANXIETY [None]
  - DRUG TOLERANCE [None]
  - HYPERHIDROSIS [None]
